FAERS Safety Report 21081235 (Version 1)
Quarter: 2022Q3

REPORT INFORMATION
  Report Type: Spontaneous
  Country: US (occurrence: None)
  Receive Date: 20220713
  Receipt Date: 20220713
  Transmission Date: 20221027
  Serious: Yes (Hospitalization, Disabling)
  Sender: FDA-Public Use
  Company Number: None

PATIENT
  Age: 5 Year
  Sex: Male

DRUGS (1)
  1. TABLOID [Suspect]
     Active Substance: THIOGUANINE
     Dosage: FREQUENCY : DAILY;?
     Route: 048
     Dates: end: 20220712

REACTIONS (2)
  - Pain in extremity [None]
  - Pyrexia [None]

NARRATIVE: CASE EVENT DATE: 20220712
